FAERS Safety Report 9565116 (Version 2)
Quarter: 2013Q4

REPORT INFORMATION
  Report Type: Report from Study
  Country: US (occurrence: US)
  Receive Date: 20130930
  Receipt Date: 20131018
  Transmission Date: 20140711
  Serious: Yes (Hospitalization)
  Sender: FDA-Public Use
  Company Number: US-ABBVIE-13P-163-1150725-00

PATIENT
  Age: 22 Year
  Sex: Female

DRUGS (6)
  1. HUMIRA [Suspect]
     Indication: CROHN^S DISEASE
  2. HUMIRA [Suspect]
     Dates: end: 201207
  3. HUMIRA [Suspect]
     Dates: start: 20130827, end: 20130827
  4. HUMIRA [Suspect]
     Dates: start: 20130828, end: 20130828
  5. HUMIRA [Suspect]
     Dates: start: 20130910, end: 20130910
  6. HUMIRA [Suspect]
     Dates: start: 201309

REACTIONS (6)
  - Large intestinal stenosis [Recovered/Resolved]
  - Crohn^s disease [Unknown]
  - Large intestinal obstruction [Recovered/Resolved]
  - Ileal stenosis [Recovered/Resolved]
  - Abdominal pain [Recovering/Resolving]
  - Crohn^s disease [Unknown]
